FAERS Safety Report 8871279 (Version 1)
Quarter: 2012Q4

REPORT INFORMATION
  Report Type: Report from Study
  Country: BR (occurrence: BR)
  Receive Date: 20121029
  Receipt Date: 20121029
  Transmission Date: 20130627
  Serious: Yes (Other)
  Sender: FDA-Public Use
  Company Number: BR-ROCHE-1148816

PATIENT
  Age: 64 Year
  Sex: Male
  Weight: 75 kg

DRUGS (8)
  1. BEVACIZUMAB [Suspect]
     Indication: COLORECTAL CANCER
     Route: 042
     Dates: start: 20110111, end: 20110607
  2. BEVACIZUMAB [Suspect]
     Route: 042
     Dates: start: 20120822, end: 20121017
  3. CAPECITABINE [Suspect]
     Indication: COLORECTAL CANCER
     Route: 065
     Dates: start: 20110111, end: 20110607
  4. CALCIUM FOLINATE [Suspect]
     Indication: COLORECTAL CANCER
     Route: 065
     Dates: start: 20120822, end: 20121017
  5. OXALIPLATIN [Suspect]
     Indication: COLORECTAL CANCER
     Route: 065
     Dates: start: 20110111, end: 20110607
  6. FLUOROURACIL [Suspect]
     Indication: COLORECTAL CANCER
     Route: 065
     Dates: start: 20120822, end: 20121017
  7. FLUOROURACIL [Suspect]
     Route: 065
     Dates: start: 20120822, end: 20121017
  8. IRINOTECAN HYDROCHLORIDE [Suspect]
     Indication: COLORECTAL CANCER
     Route: 065
     Dates: start: 20120822, end: 20121017

REACTIONS (1)
  - Disease progression [Unknown]
